FAERS Safety Report 24366421 (Version 3)
Quarter: 2024Q4

REPORT INFORMATION
  Report Type: Spontaneous
  Country: CA (occurrence: CA)
  Receive Date: 20240926
  Receipt Date: 20241126
  Transmission Date: 20250115
  Serious: No
  Sender: PFIZER
  Company Number: CA-PFIZER INC-202400254694

PATIENT

DRUGS (1)
  1. DEXTROSE [Suspect]
     Active Substance: DEXTROSE MONOHYDRATE
     Dosage: 50 % (50 %  PREFILLED SYRINGE)

REACTIONS (2)
  - Syringe issue [Unknown]
  - Device mechanical issue [Unknown]
